FAERS Safety Report 10584940 (Version 2)
Quarter: 2014Q4

REPORT INFORMATION
  Report Type: Report from Study
  Country: EG (occurrence: EG)
  Receive Date: 20141114
  Receipt Date: 20141201
  Transmission Date: 20150529
  Serious: Yes (Death, Hospitalization)
  Sender: FDA-Public Use
  Company Number: EG-SA-2014SA154868

PATIENT
  Age: 63 Year
  Sex: Male

DRUGS (2)
  1. APIDRA [Concomitant]
     Active Substance: INSULIN GLULISINE
  2. LANTUS [Suspect]
     Active Substance: INSULIN GLARGINE
     Indication: DIABETES MELLITUS
     Route: 058
     Dates: start: 20130912

REACTIONS (3)
  - Hepatic fibrosis [Fatal]
  - Hepatitis C [Fatal]
  - Condition aggravated [Fatal]

NARRATIVE: CASE EVENT DATE: 1994
